FAERS Safety Report 4912870-9 (Version None)
Quarter: 2006Q1

REPORT INFORMATION
  Report Type: 
  Country: None (occurrence: None)
  Receive Date: 20060210
  Receipt Date: 20060206
  Transmission Date: 20060701
  Serious: Yes (Life-Threatening)
  Sender: FDA-Public Use
  Company Number: B0393287A

PATIENT
  Age: 76 Year
  Sex: Female
  Weight: 69.8539 kg

DRUGS (6)
  1. REQUIP [Suspect]
     Indication: PARKINSON'S DISEASE
     Dosage: .25 MG / THREE TIMES PER DAY / ORAL
     Route: 048
     Dates: start: 20050813, end: 20050816
  2. SELEGILINE HCL [Concomitant]
  3. SINEMET [Concomitant]
  4. DILTIAZEM HYDROCHLORIDE [Concomitant]
  5. ASPIRIN [Concomitant]
  6. SINEMET [Concomitant]

REACTIONS (1)
  - VENTRICULAR FIBRILLATION [None]
